FAERS Safety Report 9240087 (Version 1)
Quarter: 2013Q2

REPORT INFORMATION
  Report Type: Spontaneous
  Country: US (occurrence: None)
  Receive Date: 20130418
  Receipt Date: 20130418
  Transmission Date: 20140414
  Serious: Yes (Hospitalization)
  Sender: FDA-Public Use
  Company Number: None

PATIENT
  Age: 56 Year
  Sex: Female

DRUGS (1)
  1. INSULIN DILUTING MEDIUM [Suspect]
     Indication: TYPE 1 DIABETES MELLITUS
     Dates: start: 20130127

REACTIONS (6)
  - Drug dispensing error [None]
  - Wrong drug administered [None]
  - Diabetic ketoacidosis [None]
  - Product identification number issue [None]
  - Renal disorder [None]
  - Liver disorder [None]
